FAERS Safety Report 9476255 (Version 3)
Quarter: 2013Q3

REPORT INFORMATION
  Report Type: Spontaneous
  Country: DK (occurrence: None)
  Receive Date: 20130808
  Receipt Date: 20130823
  Transmission Date: 20140515
  Serious: Yes (Hospitalization)
  Sender: FDA-Public Use
  Company Number: 2013037126

PATIENT
  Age: 42 Year
  Sex: Female

DRUGS (1)
  1. PRIVIGEN [Suspect]
     Indication: MULTIFOCAL MOTOR NEUROPATHY
     Dosage: DAY 1; 20 G + 10 G + 5 G, DAY 2; 20 G + 20 G AND DAY 3; 20 G + 20 G.
     Dates: start: 20130707, end: 20130709

REACTIONS (4)
  - Headache [None]
  - Vomiting [None]
  - Dermatitis bullous [None]
  - Off label use [None]
